FAERS Safety Report 14640241 (Version 2)
Quarter: 2018Q1

REPORT INFORMATION
  Report Type: Spontaneous
  Country: US (occurrence: US)
  Receive Date: 20180315
  Receipt Date: 20180319
  Transmission Date: 20180509
  Serious: No
  Sender: FDA-Public Use
  Company Number: US-JNJFOC-20180236947

PATIENT
  Sex: Female

DRUGS (2)
  1. ROGAINE [Suspect]
     Active Substance: MINOXIDIL
     Route: 065
  2. ROGAINE [Suspect]
     Active Substance: MINOXIDIL
     Indication: ALOPECIA SCARRING
     Route: 065
     Dates: start: 20170917

REACTIONS (3)
  - Peripheral swelling [Recovering/Resolving]
  - Product use in unapproved indication [Unknown]
  - Off label use [Unknown]
